FAERS Safety Report 7610765-3 (Version None)
Quarter: 2011Q3

REPORT INFORMATION
  Report Type: 
  Country: None (occurrence: None)
  Receive Date: 20110715
  Receipt Date: 20110706
  Transmission Date: 20111222
  Serious: Yes (Hospitalization)
  Sender: FDA-Public Use
  Company Number: KR-BAYER-2011-027623

PATIENT
  Age: 67 Year
  Sex: Female
  Weight: 49 kg

DRUGS (4)
  1. SORAFENIB (RAF KINASE INHIBITOR) [Suspect]
     Indication: GASTRIC CANCER
     Dosage: 800 MG, UNK
     Dates: start: 20110323, end: 20110329
  2. SORAFENIB (RAF KINASE INHIBITOR) [Suspect]
     Dosage: UNK
     Dates: start: 20110329, end: 20110413
  3. CISPLATIN [Suspect]
     Indication: GASTRIC CANCER
     Dosage: 85 MG, QD
     Dates: start: 20110323
  4. CAPECITABINE [Suspect]
     Indication: GASTRIC CANCER
     Dosage: 2300 MG, UNK
     Dates: start: 20110323, end: 20110329

REACTIONS (1)
  - CEREBROVASCULAR ACCIDENT [None]
